FAERS Safety Report 16336064 (Version 1)
Quarter: 2019Q2

REPORT INFORMATION
  Report Type: Other
  Country: None (occurrence: CN)
  Receive Date: 20190521
  Receipt Date: 20190521
  Transmission Date: 20190711
  Serious: Yes (Other)
  Sender: FDA-Public Use
  Company Number: CN-JIANGSU HENGRUI MEDICINE CO., LTD.-2067249

PATIENT
  Age: 40 Year
  Sex: Female

DRUGS (3)
  1. SUFENTANIL CITRATE INJECTION [Concomitant]
     Dates: start: 20190425, end: 20190425
  2. CISATRACURIUM BESYLATE INJECTION USP, 10 MG/5 ML (2 MG/ML) AND 200 MG/ [Suspect]
     Active Substance: CISATRACURIUM BESYLATE
     Indication: INDUCTION OF ANAESTHESIA
     Route: 042
     Dates: start: 20190425, end: 20190425
  3. PROPOFOL MEDIUM AND LONG CHAIN FAT EMULSION INJECTION [Concomitant]
     Dates: start: 20190425, end: 20190425

REACTIONS (1)
  - Circulatory collapse [Recovering/Resolving]

NARRATIVE: CASE EVENT DATE: 20190425
